FAERS Safety Report 18445697 (Version 1)
Quarter: 2020Q4

REPORT INFORMATION
  Report Type: Spontaneous
  Country: PL (occurrence: PL)
  Receive Date: 20201030
  Receipt Date: 20201030
  Transmission Date: 20210114
  Serious: Yes (Death, Other)
  Sender: FDA-Public Use
  Company Number: PL-BAYER-2020-217458

PATIENT
  Age: 75 Year
  Sex: Male

DRUGS (2)
  1. XOFIGO [Suspect]
     Active Substance: RADIUM RA-223 DICHLORIDE
     Indication: PROSTATE CANCER
     Dosage: UNK
     Dates: start: 20191017
  2. LYRICA [Concomitant]
     Active Substance: PREGABALIN
     Indication: PAIN
     Dosage: UNK

REACTIONS (10)
  - Pain [None]
  - Blood alkaline phosphatase increased [None]
  - Death [Fatal]
  - Haemoglobin decreased [None]
  - Central nervous system lesion [None]
  - Somnolence [None]
  - General physical health deterioration [None]
  - Dizziness [None]
  - Asthenia [None]
  - Prostatic specific antigen increased [None]

NARRATIVE: CASE EVENT DATE: 202010
